FAERS Safety Report 21098171 (Version 4)
Quarter: 2022Q4

REPORT INFORMATION
  Report Type: Spontaneous
  Country: CZ (occurrence: CZ)
  Receive Date: 20220719
  Receipt Date: 20221001
  Transmission Date: 20230113
  Serious: Yes (Hospitalization)
  Sender: FDA-Public Use
  Company Number: CZ-002147023-NVSC2022CZ151845

PATIENT
  Age: 68 Year
  Sex: Male

DRUGS (9)
  1. PAROXETINE [Interacting]
     Active Substance: PAROXETINE
     Indication: Depression
     Dosage: 40 MILLIGRAM, ONCE A DAY (20 MG, BID)
     Route: 065
  2. PREGABALIN [Suspect]
     Active Substance: PREGABALIN
     Dosage: 450 MILLIGRAM, ONCE A DAY (150 MG, TID)
     Route: 048
  3. ASPIRIN [Suspect]
     Active Substance: ASPIRIN
     Indication: Depression
     Dosage: 100 MILLIGRAM, ONCE A DAY
     Route: 065
  4. PERINDOPRIL [Suspect]
     Active Substance: PERINDOPRIL
     Indication: Depression
     Dosage: 8 MILLIGRAM, ONCE A DAY (4 MG, BID)
     Route: 065
  5. PERINDOPRIL [Suspect]
     Active Substance: PERINDOPRIL
     Dosage: 14 MILLIGRAM, TWO TIMES A DAY
     Route: 065
  6. RISPERDAL [Interacting]
     Active Substance: RISPERIDONE
     Indication: Depression
     Dosage: 2 MILLIGRAM, ONCE A DAY (1 MG, BID)
     Route: 065
  7. VORTIOXETINE HYDROBROMIDE [Suspect]
     Active Substance: VORTIOXETINE HYDROBROMIDE
     Indication: Depression
     Dosage: UNK
     Route: 065
  8. VORTIOXETINE HYDROBROMIDE [Suspect]
     Active Substance: VORTIOXETINE HYDROBROMIDE
     Dosage: UNK
     Route: 065
  9. LACTULOSE [Concomitant]
     Active Substance: LACTULOSE
     Indication: Constipation
     Dosage: UNK
     Route: 065

REACTIONS (8)
  - Constipation [Recovered/Resolved]
  - Tremor [Not Recovered/Not Resolved]
  - Extrapyramidal disorder [Recovering/Resolving]
  - Drug level increased [Unknown]
  - Dysarthria [Recovered/Resolved]
  - Potentiating drug interaction [Unknown]
  - Incorrect dose administered [Unknown]
  - Product use in unapproved indication [Unknown]

NARRATIVE: CASE EVENT DATE: 20220101
